FAERS Safety Report 16939116 (Version 1)
Quarter: 2019Q4

REPORT INFORMATION
  Report Type: Spontaneous
  Country: CN (occurrence: CN)
  Receive Date: 20191020
  Receipt Date: 20191020
  Transmission Date: 20200122
  Serious: Yes (Hospitalization)
  Sender: FDA-Public Use
  Company Number: CN-BAXTER-2019BAX020560

PATIENT
  Age: 54 Year
  Sex: Male
  Weight: 60 kg

DRUGS (16)
  1. 0.9% SODIUM CHLORIDE INJECTION [Suspect]
     Active Substance: SODIUM CHLORIDE
     Indication: MEDICATION DILUTION
     Dosage: MABTHERA + 0.9 NS D1
     Route: 041
     Dates: start: 20190702, end: 20190702
  2. STERILE WATER FOR INJECTION [Suspect]
     Active Substance: WATER
     Indication: MEDICATION DILUTION
     Dosage: EPIRUBICIN + WATER FOR INJECTION D2-3
     Route: 042
     Dates: start: 20190703, end: 20190704
  3. 0.9% SODIUM CHLORIDE INJECTION [Suspect]
     Active Substance: SODIUM CHLORIDE
     Dosage: MABTHERA + 0.9 NS; DOSE RE-INTRODUCED
     Route: 041
  4. 0.9% SODIUM CHLORIDE INJECTION [Suspect]
     Active Substance: SODIUM CHLORIDE
     Dosage: ENDOXAN + 0.9 NS; DOSE RE-INTRODUCED
     Route: 042
  5. STERILE WATER FOR INJECTION [Suspect]
     Active Substance: WATER
     Dosage: EPIRUBICIN + WATER FOR INJECTION; DOSE RE-INTRODUCED
     Route: 042
  6. EPIRUBICIN HYDROCHLORIDE. [Suspect]
     Active Substance: EPIRUBICIN HYDROCHLORIDE
     Dosage: EPIRUBICIN + WATER FOR INJECTION; DOSE RE-INTRODUCED
     Route: 042
  7. ENDOXAN [Suspect]
     Active Substance: CYCLOPHOSPHAMIDE
     Indication: LYMPHOMA
     Dosage: ENDOXAN + 0.9 NS D2
     Route: 042
     Dates: start: 20190703, end: 20190703
  8. ENDOXAN [Suspect]
     Active Substance: CYCLOPHOSPHAMIDE
     Dosage: ENDOXAN + 0.9 NS; DOSE RE-INTRODUCED
     Route: 042
  9. 0.9% SODIUM CHLORIDE INJECTION [Suspect]
     Active Substance: SODIUM CHLORIDE
     Dosage: ENDOXAN + 0.9 NS D2
     Route: 042
     Dates: start: 20190703, end: 20190703
  10. 0.9% SODIUM CHLORIDE INJECTION [Suspect]
     Active Substance: SODIUM CHLORIDE
     Dosage: VINDESINE + 0.9 NS D2
     Route: 042
     Dates: start: 20190703, end: 20190703
  11. MABTHERA [Suspect]
     Active Substance: RITUXIMAB
     Dosage: MABTHERA + 0.9 NS; DOSE RE-INTRODUCED
     Route: 041
  12. 0.9% SODIUM CHLORIDE INJECTION [Suspect]
     Active Substance: SODIUM CHLORIDE
     Dosage: VINDESINE + 0.9 NS; DOSE RE-INTRODUCED
     Route: 042
  13. EPIRUBICIN HYDROCHLORIDE. [Suspect]
     Active Substance: EPIRUBICIN HYDROCHLORIDE
     Indication: LYMPHOMA
     Dosage: EPIRUBICIN + WATER FOR INJECTION D2-3
     Route: 042
     Dates: start: 20190703, end: 20190704
  14. VINDESINE SULFATE [Suspect]
     Active Substance: VINDESINE SULFATE
     Indication: LYMPHOMA
     Dosage: VINDESINE + 0.9 NS D2
     Route: 042
     Dates: start: 20190703, end: 20190703
  15. MABTHERA [Suspect]
     Active Substance: RITUXIMAB
     Indication: LYMPHOMA
     Dosage: MABTHERA + 0.9 NS D1
     Route: 041
     Dates: start: 20190702, end: 20190702
  16. VINDESINE SULFATE [Suspect]
     Active Substance: VINDESINE SULFATE
     Dosage: VINDESINE + 0.9 NS; DOSE RE-INTRODUCED
     Route: 042

REACTIONS (1)
  - Bone marrow failure [Recovering/Resolving]

NARRATIVE: CASE EVENT DATE: 20190711
